FAERS Safety Report 13095174 (Version 3)
Quarter: 2017Q2

REPORT INFORMATION
  Report Type: Spontaneous
  Country: US (occurrence: US)
  Receive Date: 20170107
  Receipt Date: 20170621
  Transmission Date: 20170830
  Serious: No
  Sender: FDA-Public Use
  Company Number: US-TEVA-724715ACC

PATIENT
  Age: 53 Year
  Sex: Male

DRUGS (15)
  1. AMPYRA [Suspect]
     Active Substance: DALFAMPRIDINE
     Indication: MULTIPLE SCLEROSIS
     Route: 065
     Dates: start: 20160310
  2. METOPROLOL. [Concomitant]
     Active Substance: METOPROLOL
     Dates: start: 20160810
  3. OMEGA-3-ACID [Concomitant]
     Dates: start: 20160516
  4. BACLOFEN. [Concomitant]
     Active Substance: BACLOFEN
     Dates: start: 20160728
  5. OYSCO 500+ D [Concomitant]
     Dates: start: 20160912
  6. VASCEPA [Concomitant]
     Active Substance: ICOSAPENT ETHYL
  7. ACETAMINOPHEN. [Concomitant]
     Active Substance: ACETAMINOPHEN
  8. DICLOFEN [Concomitant]
     Active Substance: DICLOFENAC SODIUM
  9. OMEPRAZOLE. [Concomitant]
     Active Substance: OMEPRAZOLE
     Dates: start: 20160822
  10. SIMVASTATIN. [Concomitant]
     Active Substance: SIMVASTATIN
  11. COPAXONE [Suspect]
     Active Substance: GLATIRAMER ACETATE
     Indication: MULTIPLE SCLEROSIS
     Route: 058
     Dates: start: 20160305
  12. MULTIVITAMIN [Concomitant]
     Active Substance: VITAMINS
     Dates: start: 20160908
  13. ZETIA [Concomitant]
     Active Substance: EZETIMIBE
     Dates: start: 20160916
  14. ARTHRITIS PAIN [Concomitant]
     Active Substance: ACETAMINOPHEN
     Indication: ARTHRITIS
     Dates: start: 20160425
  15. GLUCOSAMINE [Concomitant]
     Active Substance: GLUCOSAMINE

REACTIONS (2)
  - Muscular weakness [Not Recovered/Not Resolved]
  - Injection site pain [Unknown]

NARRATIVE: CASE EVENT DATE: 201609
